FAERS Safety Report 13328632 (Version 1)
Quarter: 2017Q1

REPORT INFORMATION
  Report Type: Spontaneous
  Country: US (occurrence: US)
  Receive Date: 20170310
  Receipt Date: 20170310
  Transmission Date: 20170428
  Serious: No
  Sender: FDA-Public Use
  Company Number: None

PATIENT
  Age: 48 Year
  Sex: Female
  Weight: 52.2 kg

DRUGS (7)
  1. THEOPHYLLINE [Concomitant]
     Active Substance: THEOPHYLLINE ANHYDROUS
  2. ATORVASTATIN [Concomitant]
     Active Substance: ATORVASTATIN
  3. RECLAST [Suspect]
     Active Substance: ZOLEDRONIC ACID
  4. NOVOLOG [Concomitant]
     Active Substance: INSULIN ASPART
  5. LEVEMIR [Concomitant]
     Active Substance: INSULIN DETEMIR
  6. PLAVIX [Concomitant]
     Active Substance: CLOPIDOGREL BISULFATE
  7. TYLENOL [Concomitant]
     Active Substance: ACETAMINOPHEN

REACTIONS (5)
  - Myalgia [None]
  - Influenza like illness [None]
  - Dry mouth [None]
  - Pyrexia [None]
  - Muscle spasms [None]

NARRATIVE: CASE EVENT DATE: 20170308
